FAERS Safety Report 8568831 (Version 2)
Quarter: 2013Q1

REPORT INFORMATION
  Report Type: Spontaneous
  Country: US (occurrence: US)
  Receive Date: 20120518
  Receipt Date: 20130104
  Transmission Date: 20140127
  Serious: No
  Sender: FDA-Public Use
  Company Number: US-ELI_LILLY_AND_COMPANY-US201205002932

PATIENT
  Age: 70 Year
  Sex: Male
  Weight: 81.18 kg

DRUGS (12)
  1. EFFIENT [Suspect]
     Indication: STENT PLACEMENT
     Dosage: 10 MG, QD
     Dates: start: 201111, end: 20120504
  2. ASPIRIN [Concomitant]
     Dosage: 325 MG, QD
  3. ASPIRIN [Concomitant]
     Dosage: 81 MG, BID
  4. POLICOSANOL [Concomitant]
     Dosage: 10 MG, QD
  5. LOSARTAN [Concomitant]
     Dosage: 50 MG, BID
  6. LOPRAZOLAM [Concomitant]
     Dosage: 0.5 MG, BID
  7. VITAMIN D [Concomitant]
     Dosage: 3000 IU, UNK
  8. PREVACID [Concomitant]
     Dosage: 30 MG, QD
  9. CARVEDILOL [Concomitant]
     Dosage: 12.5 MG, QD
  10. AMITIZA [Concomitant]
     Dosage: 8 MG, 2-3 CAPSULES DAILY
  11. WELCHOL [Concomitant]
     Dosage: 625 MG, UNKNOWN
  12. NIASPAN [Concomitant]

REACTIONS (12)
  - Contusion [Recovering/Resolving]
  - Off label use [Recovered/Resolved]
  - Lacrimation increased [Unknown]
  - Eye pain [Unknown]
  - Visual impairment [Unknown]
  - Eye swelling [Unknown]
  - Abdominal discomfort [Unknown]
  - Dyspepsia [Unknown]
  - Gastrointestinal motility disorder [Recovered/Resolved]
  - Diarrhoea [Unknown]
  - Chromaturia [Unknown]
  - Hepatic enzyme increased [Recovering/Resolving]
